FAERS Safety Report 10914358 (Version 1)
Quarter: 2015Q1

REPORT INFORMATION
  Report Type: Spontaneous
  Country: US (occurrence: None)
  Receive Date: 20150311
  Receipt Date: 20150311
  Transmission Date: 20150721
  Serious: Yes (Other)
  Sender: FDA-Public Use
  Company Number: FK201501127

PATIENT
  Age: 65 Year
  Sex: Female

DRUGS (3)
  1. TOPOTECAN [Suspect]
     Active Substance: TOPOTECAN\TOPOTECAN HYDROCHLORIDE
     Indication: MALIGNANT NEOPLASM OF SPINAL CORD
     Route: 018
  2. TOPOTECAN [Suspect]
     Active Substance: TOPOTECAN\TOPOTECAN HYDROCHLORIDE
     Indication: BREAST CANCER METASTATIC
     Route: 018
  3. TOPOTECAN [Suspect]
     Active Substance: TOPOTECAN\TOPOTECAN HYDROCHLORIDE
     Indication: METASTASES TO MENINGES
     Route: 018

REACTIONS (1)
  - Colloid brain cyst [None]
